FAERS Safety Report 8247999-3 (Version None)
Quarter: 2012Q1

REPORT INFORMATION
  Report Type: 
  Country: None (occurrence: None)
  Receive Date: 20120330
  Receipt Date: 20120322
  Transmission Date: 20120608
  Serious: Yes (Hospitalization)
  Sender: FDA-Public Use
  Company Number: FR-JNJFOC-20120314262

PATIENT
  Age: 77 Year
  Sex: Female

DRUGS (4)
  1. XARELTO [Suspect]
     Indication: THROMBOSIS PROPHYLAXIS
     Route: 048
     Dates: start: 20120113, end: 20120125
  2. ASPIRIN [Concomitant]
     Dates: start: 20120125
  3. XARELTO [Suspect]
     Indication: HIP ARTHROPLASTY
     Route: 048
     Dates: start: 20120113, end: 20120125
  4. LOVENOX [Concomitant]
     Dates: start: 20120125, end: 20120129

REACTIONS (2)
  - HYPERKALAEMIA [None]
  - THROMBOCYTOSIS [None]
